FAERS Safety Report 16245508 (Version 2)
Quarter: 2020Q3

REPORT INFORMATION
  Report Type: Spontaneous
  Country: CH (occurrence: CH)
  Receive Date: 20190426
  Receipt Date: 20200903
  Transmission Date: 20201102
  Serious: Yes (Hospitalization, Other)
  Sender: FDA-Public Use
  Company Number: CH-GILEAD-2019-0402717

PATIENT
  Age: 34 Year
  Sex: Male

DRUGS (9)
  1. METHADONE [Interacting]
     Active Substance: METHADONE HYDROCHLORIDE
     Dosage: IN TOTAL
     Route: 048
     Dates: start: 20190409, end: 20190409
  2. TRUVADA [Concomitant]
     Active Substance: EMTRICITABINE\TENOFOVIR DISOPROXIL FUMARATE
     Dosage: UNK
     Route: 065
     Dates: start: 201903
  3. COMBIVIR [Concomitant]
     Active Substance: LAMIVUDINE\ZIDOVUDINE
     Dates: end: 201808
  4. KALETRA [Concomitant]
     Active Substance: LOPINAVIR\RITONAVIR
     Dates: end: 201808
  5. TIVICAY [Concomitant]
     Active Substance: DOLUTEGRAVIR SODIUM
     Dates: start: 201903
  6. METHADONE [Interacting]
     Active Substance: METHADONE HYDROCHLORIDE
     Indication: PRODUCT USED FOR UNKNOWN INDICATION
     Dosage: 130 MG, QD
     Route: 048
     Dates: start: 201812, end: 201903
  7. METHADONE [Interacting]
     Active Substance: METHADONE HYDROCHLORIDE
     Dosage: 150 MG, QD
     Route: 048
     Dates: start: 201904
  8. ATRIPLA [Suspect]
     Active Substance: EFAVIRENZ\EMTRICITABINE\TENOFOVIR DISOPROXIL FUMARATE
     Indication: HIV INFECTION
     Dosage: UNK
     Route: 065
     Dates: start: 20190307, end: 201903
  9. METHADONE [Interacting]
     Active Substance: METHADONE HYDROCHLORIDE
     Dosage: 180 MG, QD
     Route: 048
     Dates: start: 201903, end: 201903

REACTIONS (2)
  - Apnoeic attack [Recovered/Resolved]
  - Drug interaction [Recovered/Resolved]

NARRATIVE: CASE EVENT DATE: 201903
